FAERS Safety Report 5003029-8 (Version None)
Quarter: 2006Q2

REPORT INFORMATION
  Report Type: 
  Country: None (occurrence: None)
  Receive Date: 20060516
  Receipt Date: 20051205
  Transmission Date: 20061013
  Serious: Yes (Hospitalization)
  Sender: FDA-Public Use
  Company Number: US-MERCK-0512USA00653

PATIENT
  Age: 59 Year
  Sex: Male
  Weight: 92 kg

DRUGS (5)
  1. VIOXX [Suspect]
     Indication: OSTEOARTHRITIS
     Route: 048
     Dates: start: 20001005, end: 20031201
  2. VIOXX [Suspect]
     Indication: PAIN
     Route: 048
     Dates: start: 20001005, end: 20031201
  3. TYLENOL (CAPLET) [Concomitant]
     Route: 065
  4. ASPIRIN [Concomitant]
     Route: 065
     Dates: start: 19800101
  5. STATIN (UNSPECIFIED) [Concomitant]
     Indication: BLOOD CHOLESTEROL INCREASED
     Route: 065

REACTIONS (9)
  - ANGER [None]
  - CHEST PAIN [None]
  - CORONARY ARTERY DISEASE [None]
  - EMOTIONAL DISORDER [None]
  - HIATUS HERNIA [None]
  - HYPERGLYCAEMIA [None]
  - SLEEP APNOEA SYNDROME [None]
  - STOMACH DISCOMFORT [None]
  - VOMITING [None]
